FAERS Safety Report 9399733 (Version 2)
Quarter: 2013Q3

REPORT INFORMATION
  Report Type: Spontaneous
  Country: US (occurrence: None)
  Receive Date: 20130710
  Receipt Date: 20130730
  Transmission Date: 20140515
  Serious: Yes (Other)
  Sender: FDA-Public Use
  Company Number: SYM-2013-05361

PATIENT
  Sex: 0

DRUGS (3)
  1. FLUOROURACIL [Suspect]
     Indication: OESOPHAGEAL CARCINOMA
     Dosage: DOSAGE TAKEN AS 24 HR. CONTINUOUS INFUSION ON SAME DAYS AS RADIOTHERAPY.
     Route: 042
  2. DOCETAXEL [Suspect]
     Indication: OESOPHAGEAL CARCINOMA
     Dosage: DOSAGE TAKEN ON DAYS 1, 8, 22, 29, AND 43 OF IV THERAPY.
     Route: 042
  3. THERAPEUTIC RADIOPHARMACEUTICALS [Suspect]
     Indication: OESOPHAGEAL CARCINOMA
     Route: 042

REACTIONS (1)
  - Pleural effusion [None]
